FAERS Safety Report 9110276 (Version 2)
Quarter: 2013Q2

REPORT INFORMATION
  Report Type: Spontaneous
  Country: US (occurrence: US)
  Receive Date: 20130222
  Receipt Date: 20130506
  Transmission Date: 20140414
  Serious: Yes (Other)
  Sender: FDA-Public Use
  Company Number: US-BAYER-2013-020137

PATIENT
  Age: 35 Year
  Sex: Female

DRUGS (1)
  1. MIRENA [Suspect]
     Indication: ENDOMETRIOSIS
     Dosage: 20 MCG/24HR, CONT
     Route: 015
     Dates: start: 20130118

REACTIONS (4)
  - Pain in extremity [None]
  - Abdominal pain lower [None]
  - Genital haemorrhage [None]
  - Off label use [None]
